FAERS Safety Report 11753404 (Version 1)
Quarter: 2015Q4

REPORT INFORMATION
  Report Type: Spontaneous
  Country: US (occurrence: US)
  Receive Date: 20151119
  Receipt Date: 20151119
  Transmission Date: 20160304
  Serious: Yes (Other)
  Sender: FDA-Public Use
  Company Number: US-ACTAVIS-2015-24901

PATIENT
  Age: 72 Year
  Sex: Male

DRUGS (1)
  1. PACLITAXEL (ATLLC) [Suspect]
     Active Substance: PACLITAXEL
     Indication: GASTRIC CANCER
     Dosage: EVERY THREE WEEKS
     Route: 065

REACTIONS (1)
  - Acute interstitial pneumonitis [Recovering/Resolving]
